FAERS Safety Report 9384760 (Version 1)
Quarter: 2013Q3

REPORT INFORMATION
  Report Type: Spontaneous
  Country: AU (occurrence: AU)
  Receive Date: 20130705
  Receipt Date: 20130705
  Transmission Date: 20140515
  Serious: Yes (Other)
  Sender: FDA-Public Use
  Company Number: AU-PFIZER INC-2013194636

PATIENT
  Age: 38 Year
  Sex: Female

DRUGS (1)
  1. DEPO-RALOVERA [Suspect]
     Indication: CONTRACEPTION
     Route: 030

REACTIONS (2)
  - Vaginal haemorrhage [Unknown]
  - Metrorrhagia [Unknown]
